FAERS Safety Report 14932210 (Version 6)
Quarter: 2023Q2

REPORT INFORMATION
  Report Type: Report from Study
  Country: US (occurrence: US)
  Receive Date: 20180524
  Receipt Date: 20230406
  Transmission Date: 20230722
  Serious: Yes (Death, Hospitalization, Other)
  Sender: FDA-Public Use
  Company Number: US-ACADIA PHARMACEUTICALS INC.-ACA-2018-007996

PATIENT
  Sex: Female

DRUGS (30)
  1. NUPLAZID [Suspect]
     Active Substance: PIMAVANSERIN TARTRATE
     Indication: Parkinson^s disease
     Dosage: 34 MILLIGRAM, QD
     Route: 048
     Dates: start: 20190214
  2. NUPLAZID [Suspect]
     Active Substance: PIMAVANSERIN TARTRATE
     Indication: Hallucination
     Dosage: 17 MG, QD
     Route: 048
     Dates: start: 2018
  3. NUPLAZID [Suspect]
     Active Substance: PIMAVANSERIN TARTRATE
     Indication: Delusion
     Dosage: 34 MG, QD
     Route: 048
     Dates: start: 20180309, end: 20180820
  4. NUPLAZID [Suspect]
     Active Substance: PIMAVANSERIN TARTRATE
     Indication: Parkinson^s disease psychosis
     Dosage: 34 MG, QD
     Route: 048
     Dates: start: 20181210
  5. ALPRAZOLAM [Concomitant]
     Active Substance: ALPRAZOLAM
     Dosage: 1 MG, UNK
     Dates: start: 20180716
  6. CARAFATE [Concomitant]
     Active Substance: SUCRALFATE
     Dosage: SUSPENSION 1GM /10ML
     Dates: start: 20180215
  7. CARBIDOPA\LEVODOPA [Concomitant]
     Active Substance: CARBIDOPA\LEVODOPA
     Dosage: 25-100 MG
     Dates: start: 20170622
  8. CLONIDINE HYDROCHLORIDE [Concomitant]
     Active Substance: CLONIDINE HYDROCHLORIDE
     Dosage: 0.2 MG
     Dates: start: 20171213
  9. CLOPIDOGREL BISULFATE [Concomitant]
     Active Substance: CLOPIDOGREL BISULFATE
     Dosage: 75 MG, UNK
     Dates: start: 20180511
  10. CLOPIDOGREL BISULFATE [Concomitant]
     Active Substance: CLOPIDOGREL BISULFATE
     Dosage: 75 MG, UNK
     Dates: start: 20180602
  11. DUREZOL [Concomitant]
     Active Substance: DIFLUPREDNATE
     Dosage: 0.06%
     Dates: start: 20180307
  12. ENTACAPONE [Concomitant]
     Active Substance: ENTACAPONE
     Dosage: 200 MG, UNK
     Dates: start: 20180215
  13. ENTACAPONE [Concomitant]
     Active Substance: ENTACAPONE
     Dosage: 200 MG, UNK
     Dates: start: 20180803
  14. LISINOPRIL [Concomitant]
     Active Substance: LISINOPRIL
     Dosage: 10 MG, UNK
     Dates: start: 20180413
  15. METOPROLOL SUCCINATE [Concomitant]
     Active Substance: METOPROLOL SUCCINATE
     Dosage: 100 MG, ER
     Dates: start: 20180423
  16. PANTOPRAZOLE [Concomitant]
     Active Substance: PANTOPRAZOLE
     Dosage: 40 MG, UNK
     Dates: start: 20180103
  17. TIZANIDINE HYDROCHLORIDE [Concomitant]
     Active Substance: TIZANIDINE HYDROCHLORIDE
     Dosage: 4 MG, UNK
     Dates: start: 20180815
  18. VITAMIN B12 [Concomitant]
     Active Substance: CYANOCOBALAMIN
     Dosage: 1000 MCG
     Dates: start: 20180718
  19. CEFDINIR [Concomitant]
     Active Substance: CEFDINIR
  20. DICLOFENAC [Concomitant]
     Active Substance: DICLOFENAC
  21. LINZESS [Concomitant]
     Active Substance: LINACLOTIDE
  22. ZOFRAN [Concomitant]
     Active Substance: ONDANSETRON HYDROCHLORIDE
  23. OXYCODONE [Concomitant]
     Active Substance: OXYCODONE
  24. CYANOCOBALAMIN [Concomitant]
     Active Substance: CYANOCOBALAMIN
  25. ROSUVASTATIN [Concomitant]
     Active Substance: ROSUVASTATIN
  26. PLAVIX [Concomitant]
     Active Substance: CLOPIDOGREL BISULFATE
  27. CHLORTHALIDONE [Concomitant]
     Active Substance: CHLORTHALIDONE
  28. ESCITALOPRAM [Concomitant]
     Active Substance: ESCITALOPRAM OXALATE
  29. fusion [Concomitant]
  30. SUCRALFATE [Concomitant]
     Active Substance: SUCRALFATE

REACTIONS (10)
  - Death [Fatal]
  - Gastrointestinal haemorrhage [Not Recovered/Not Resolved]
  - Pneumonia [Not Recovered/Not Resolved]
  - Cerebrovascular accident [Not Recovered/Not Resolved]
  - Cataract operation [Not Recovered/Not Resolved]
  - Gallbladder operation [Not Recovered/Not Resolved]
  - Ill-defined disorder [Unknown]
  - Illness [Not Recovered/Not Resolved]
  - Product dose omission issue [Recovered/Resolved]
  - Prescribed underdose [Recovered/Resolved]

NARRATIVE: CASE EVENT DATE: 20180101
